FAERS Safety Report 24980921 (Version 1)
Quarter: 2025Q1

REPORT INFORMATION
  Report Type: Spontaneous
  Country: US (occurrence: None)
  Receive Date: 20250215
  Receipt Date: 20250215
  Transmission Date: 20250409
  Serious: Yes (Hospitalization, Disabling)
  Sender: FDA-CTU
  Company Number: None

PATIENT
  Age: 38 Year
  Sex: Female
  Weight: 94.5 kg

DRUGS (10)
  1. HUMIRA [Suspect]
     Active Substance: ADALIMUMAB
     Indication: Rheumatoid arthritis
     Dates: start: 20170101, end: 20250214
  2. SPIRONOLACTONE [Concomitant]
     Active Substance: SPIRONOLACTONE
  3. PROTONIX [Concomitant]
     Active Substance: PANTOPRAZOLE SODIUM
  4. PEPCID [Concomitant]
     Active Substance: FAMOTIDINE
  5. SYNJARDY [Concomitant]
     Active Substance: EMPAGLIFLOZIN\METFORMIN HYDROCHLORIDE
  6. COPAXONE [Concomitant]
     Active Substance: GLATIRAMER ACETATE
  7. KARIVA [Concomitant]
     Active Substance: DESOGESTREL\ETHINYL ESTRADIOL
  8. IRON [Concomitant]
     Active Substance: IRON
  9. VITAMIN C [Concomitant]
     Active Substance: ASCORBIC ACID
  10. MAGNESIUM [Concomitant]
     Active Substance: MAGNESIUM

REACTIONS (1)
  - Multiple sclerosis [None]

NARRATIVE: CASE EVENT DATE: 20241229
